FAERS Safety Report 23397381 (Version 4)
Quarter: 2024Q1

REPORT INFORMATION
  Report Type: Spontaneous
  Country: CA (occurrence: CA)
  Receive Date: 20240112
  Receipt Date: 20240307
  Transmission Date: 20240410
  Serious: Yes (Other)
  Sender: FDA-Public Use
  Company Number: CA-PFIZER INC-202400009347

PATIENT
  Age: 11 Year
  Weight: 51 kg

DRUGS (5)
  1. METHOTREXATE SODIUM [Suspect]
     Active Substance: METHOTREXATE SODIUM
     Indication: Crohn^s disease
     Dosage: 1 DF, WEEKLY
  2. CALCIUM [Concomitant]
     Active Substance: CALCIUM
     Dosage: UNK, WEEKLY
     Route: 048
  3. FOLIC ACID [Concomitant]
     Active Substance: FOLIC ACID
     Dosage: UNK, WEEKLY
     Route: 048
  4. ONDANSETRON [Concomitant]
     Active Substance: ONDANSETRON
     Dosage: UNK, WEEKLY (2 HRS PRE-METHOTREXATE AND PRN 8 HRS AFTER)
  5. PENTASA [Concomitant]
     Active Substance: MESALAMINE
     Dosage: 500 MG
     Route: 048

REACTIONS (7)
  - Growth retardation [Not Recovered/Not Resolved]
  - Condition aggravated [Unknown]
  - Inflammation [Unknown]
  - Blood albumin decreased [Unknown]
  - Blood test abnormal [Not Recovered/Not Resolved]
  - Drug ineffective for unapproved indication [Unknown]
  - Off label use [Unknown]

NARRATIVE: CASE EVENT DATE: 20230901
